FAERS Safety Report 17442261 (Version 2)
Quarter: 2020Q3

REPORT INFORMATION
  Report Type: Other
  Country: JP (occurrence: JP)
  Receive Date: 20200220
  Receipt Date: 20200921
  Transmission Date: 20201102
  Serious: Yes (Life-Threatening)
  Sender: FDA-Public Use
  Company Number: JP-B.BRAUN MEDICAL INC.-2080731

PATIENT
  Age: 62 Year
  Sex: Male
  Weight: 64 kg

DRUGS (5)
  1. 20% MANNITOL INJECTION USP 0264?7578?10 0264?7578?20 [Suspect]
     Active Substance: MANNITOL
     Route: 042
  2. REMIFENTANIL HYDROCHLORIDE. [Concomitant]
     Active Substance: REMIFENTANIL HYDROCHLORIDE
     Route: 042
  3. ROCURONIUM [Concomitant]
     Active Substance: ROCURONIUM BROMIDE
     Route: 055
  4. SEVOFLURANE. [Concomitant]
     Active Substance: SEVOFLURANE
     Route: 055
  5. PROPOFOL. [Concomitant]
     Active Substance: PROPOFOL
     Route: 042

REACTIONS (1)
  - Ventricular tachycardia [None]
